FAERS Safety Report 5239096-6 (Version None)
Quarter: 2007Q1

REPORT INFORMATION
  Report Type: 
  Country: None (occurrence: None)
  Receive Date: 20070212
  Receipt Date: 20070131
  Transmission Date: 20070707
  Serious: Yes (Other)
  Sender: FDA-Public Use
  Company Number: 235931

PATIENT
  Age: 37 Year
  Sex: Female

DRUGS (8)
  1. MABTHERA(RITUXIMAB) CONC FOR SOLUTION FOR INFUSION [Suspect]
     Indication: RHEUMATOID ARTHRITIS
     Dosage: 500 MG, X2, INTRAVENOUS
     Route: 042
     Dates: start: 20051001, end: 20060501
  2. CELECOXIB (CELECOXIB) [Concomitant]
  3. METHOTREXATE [Concomitant]
  4. FOLIC ACID [Concomitant]
  5. ALENDRONATE (ALENDRONATE SODIUM) [Concomitant]
  6. PREDNISOLONE [Concomitant]
  7. OMEPRAZOLE [Concomitant]
  8. CALCIUM (CALCIUM NOS) [Concomitant]

REACTIONS (1)
  - HEARING IMPAIRED [None]
